FAERS Safety Report 20705222 (Version 1)
Quarter: 2022Q2

REPORT INFORMATION
  Report Type: Spontaneous
  Country: PT (occurrence: PT)
  Receive Date: 20220413
  Receipt Date: 20220413
  Transmission Date: 20220721
  Serious: Yes (Death)
  Sender: FDA-Public Use
  Company Number: PT-002147023-NVSC2022PT073306

PATIENT
  Age: 58 Year
  Sex: Female

DRUGS (1)
  1. RITUXIMAB [Suspect]
     Active Substance: RITUXIMAB
     Route: 065

REACTIONS (3)
  - Malabsorption [Fatal]
  - Product use in unapproved indication [Unknown]
  - Off label use [Unknown]
